FAERS Safety Report 6296426-4 (Version None)
Quarter: 2009Q3

REPORT INFORMATION
  Report Type: 
  Country: None (occurrence: None)
  Receive Date: 20090803
  Receipt Date: 20090803
  Transmission Date: 20100115
  Serious: Yes (Other)
  Sender: FDA-Public Use
  Company Number: None

PATIENT
  Sex: Female
  Weight: 79.3795 kg

DRUGS (2)
  1. TYLENOL (CAPLET) [Suspect]
     Indication: OSTEOARTHRITIS
     Dosage: 1300 MG BID 12 HRS PO
     Route: 048
     Dates: start: 20090129, end: 20090516
  2. TYLENOL (CAPLET) [Suspect]
     Indication: PROCEDURAL PAIN
     Dosage: 1300 MG BID 12 HRS PO
     Route: 048
     Dates: start: 20090129, end: 20090516

REACTIONS (1)
  - HEPATITIS [None]
